FAERS Safety Report 25518574 (Version 1)
Quarter: 2025Q3

REPORT INFORMATION
  Report Type: Spontaneous
  Country: US (occurrence: US)
  Receive Date: 20250704
  Receipt Date: 20250704
  Transmission Date: 20251020
  Serious: Yes (Congenital Anomaly, Other)
  Sender: APOTEX
  Company Number: US-APOTEX-2025AP008890

PATIENT

DRUGS (2)
  1. ACETAMINOPHEN [Suspect]
     Active Substance: ACETAMINOPHEN
     Indication: Product used for unknown indication
     Route: 064
  2. CANNABIS SATIVA SUBSP. INDICA TOP [Suspect]
     Active Substance: CANNABIS SATIVA SUBSP. INDICA TOP
     Indication: Product used for unknown indication
     Route: 064

REACTIONS (2)
  - Ductus arteriosus stenosis foetal [Recovering/Resolving]
  - Foetal exposure during pregnancy [Unknown]
